FAERS Safety Report 9490558 (Version 1)
Quarter: 2013Q3

REPORT INFORMATION
  Report Type: Spontaneous
  Country: US (occurrence: None)
  Receive Date: 20130827
  Receipt Date: 20130827
  Transmission Date: 20140515
  Serious: Yes (Life-Threatening, Hospitalization)
  Sender: FDA-Public Use
  Company Number: None

PATIENT
  Age: 67 Year
  Sex: Female
  Weight: 40.82 kg

DRUGS (8)
  1. LISINOPRIL 10 MG [Suspect]
     Indication: BLOOD PRESSURE
     Dosage: 1 PILL  ONCE DAILY MOUTH
     Route: 048
     Dates: end: 20130812
  2. EVISTA [Concomitant]
  3. ATIVAN [Concomitant]
  4. ELAVIL [Concomitant]
  5. SPIRIVA HANDIHALER [Concomitant]
  6. OMEGA-3 FATTY ACIDS [Concomitant]
  7. ASPIRIN [Concomitant]
  8. CALCIUM [Concomitant]

REACTIONS (5)
  - Swollen tongue [None]
  - Lip swelling [None]
  - Rash macular [None]
  - Throat tightness [None]
  - Obstructive airways disorder [None]
